FAERS Safety Report 13899348 (Version 1)
Quarter: 2017Q3

REPORT INFORMATION
  Report Type: Spontaneous
  Country: US (occurrence: US)
  Receive Date: 20170823
  Receipt Date: 20170823
  Transmission Date: 20171127
  Serious: Yes (Other)
  Sender: FDA-Public Use
  Company Number: None

PATIENT
  Age: 32 Year
  Sex: Female
  Weight: 56.25 kg

DRUGS (1)
  1. BUPRENORPHINE NALOZONE [Suspect]
     Active Substance: BUPRENORPHINE\NALOXONE
     Route: 060

REACTIONS (2)
  - Oral mucosal blistering [None]
  - Tongue blistering [None]

NARRATIVE: CASE EVENT DATE: 20170817
